FAERS Safety Report 5168276-3 (Version None)
Quarter: 2006Q4

REPORT INFORMATION
  Report Type: 
  Country: None (occurrence: None)
  Receive Date: 20061208
  Receipt Date: 20060920
  Transmission Date: 20070319
  Serious: Yes (Other)
  Sender: FDA-Public Use
  Company Number: ES-BRISTOL-MYERS SQUIBB COMPANY-13518352

PATIENT
  Sex: Female

DRUGS (9)
  1. KARVEZIDE [Suspect]
     Indication: HYPERTENSION
     Dosage: PRODUCT STRENGTH = 300/12.5 MG
  2. CODEINE PHOSPHATE + PRUNUS YEDOENSIS [Concomitant]
  3. OMEPRAZOLE [Concomitant]
  4. NEURONTIN [Concomitant]
  5. METFORMIN [Concomitant]
  6. GLIPIZIDE [Concomitant]
  7. DIAZEPAM [Concomitant]
  8. NEOBRUFEN [Concomitant]
  9. TRANSTEC [Concomitant]

REACTIONS (6)
  - LIVER FUNCTION TEST ABNORMAL [None]
  - MUSCLE SPASTICITY [None]
  - PARAESTHESIA [None]
  - PARALYSIS [None]
  - POLYURIA [None]
  - SENSORY LOSS [None]
